FAERS Safety Report 7092766-X (Version None)
Quarter: 2010Q4

REPORT INFORMATION
  Report Type: 
  Country: None (occurrence: None)
  Receive Date: 20101109
  Receipt Date: 20101109
  Transmission Date: 20110411
  Serious: No
  Sender: FDA-Public Use
  Company Number: None

PATIENT
  Age: 83 Year
  Sex: Female
  Weight: 89.8122 kg

DRUGS (1)
  1. SINGULAIR [Suspect]
     Indication: RESPIRATORY DISORDER
     Dosage: (1) 10MG 1X EVENING ORAL
     Route: 048
     Dates: start: 20100916, end: 20101002

REACTIONS (9)
  - ABDOMINAL PAIN UPPER [None]
  - COUGH [None]
  - DYSPEPSIA [None]
  - EAR PAIN [None]
  - FATIGUE [None]
  - HEADACHE [None]
  - NAUSEA [None]
  - RESPIRATORY DISORDER [None]
  - UPPER-AIRWAY COUGH SYNDROME [None]
